FAERS Safety Report 8449654-3 (Version None)
Quarter: 2012Q2

REPORT INFORMATION
  Report Type: 
  Country: None (occurrence: None)
  Receive Date: 20120620
  Receipt Date: 20120608
  Transmission Date: 20120825
  Serious: Yes (Hospitalization, Other)
  Sender: FDA-Public Use
  Company Number: FR-BRISTOL-MYERS SQUIBB COMPANY-16680183

PATIENT
  Age: 80 Year
  Sex: Female

DRUGS (1)
  1. COUMADIN [Suspect]
     Dates: start: 20110501, end: 20110601

REACTIONS (4)
  - VOMITING [None]
  - ABDOMINAL PAIN [None]
  - WRONG DRUG ADMINISTERED [None]
  - HAEMATOMA [None]
